FAERS Safety Report 25387964 (Version 1)
Quarter: 2025Q2

REPORT INFORMATION
  Report Type: Spontaneous
  Country: NL (occurrence: NL)
  Receive Date: 20250603
  Receipt Date: 20250603
  Transmission Date: 20250717
  Serious: Yes (Other)
  Sender: TEVA
  Company Number: None

PATIENT
  Age: 83 Year
  Sex: Female
  Weight: 69.5 kg

DRUGS (1)
  1. LISINOPRIL [Suspect]
     Active Substance: LISINOPRIL
     Indication: Hypertension
     Dosage: 1 X PER DAG 1 STYK, LISINOPRIL TABLET  5MG / BRAND NAME NOT SPECIFIED
     Route: 048
     Dates: start: 20241123, end: 20250221

REACTIONS (1)
  - Renal tubular acidosis [Recovered/Resolved]
